FAERS Safety Report 16278375 (Version 1)
Quarter: 2019Q2

REPORT INFORMATION
  Report Type: Spontaneous
  Country: CA (occurrence: CA)
  Receive Date: 20190506
  Receipt Date: 20190506
  Transmission Date: 20190711
  Serious: Yes (Death, Hospitalization, Other)
  Sender: FDA-Public Use
  Company Number: CA-PURDUE PHARMA-CAN-2019-0010000

PATIENT
  Age: 31 Year
  Sex: Female
  Weight: 70 kg

DRUGS (1)
  1. DILAUDID [Suspect]
     Active Substance: HYDROMORPHONE HYDROCHLORIDE
     Indication: PRODUCT USED FOR UNKNOWN INDICATION
     Dosage: UNK
     Route: 065

REACTIONS (10)
  - Drain removal [Fatal]
  - Adverse reaction [Fatal]
  - Malignant neoplasm progression [Fatal]
  - Decreased appetite [Fatal]
  - Feeling abnormal [Fatal]
  - Product use in unapproved indication [Fatal]
  - Death [Fatal]
  - Circumstance or information capable of leading to medication error [Fatal]
  - Pain [Fatal]
  - Fatigue [Fatal]
